FAERS Safety Report 8866068 (Version 3)
Quarter: 2014Q2

REPORT INFORMATION
  Report Type: Spontaneous
  Country: US (occurrence: US)
  Receive Date: 20121025
  Receipt Date: 20131018
  Transmission Date: 20141212
  Serious: Yes (Other)
  Sender: FDA-Public Use
  Company Number: US-PFIZER INC-2012225662

PATIENT
  Age: 18 Year
  Sex: Male

DRUGS (1)
  1. MORPHINE SULFATE [Suspect]
     Indication: DRUG ABUSE
     Dosage: SNORTING TWO LINES OF CRUSHED TABLETS
     Route: 045

REACTIONS (8)
  - Intentional product misuse [Recovered/Resolved]
  - Deafness [Recovered/Resolved]
  - Loss of consciousness [Recovered/Resolved]
  - Hypotension [Recovered/Resolved]
  - Renal impairment [Recovered/Resolved]
  - Tachycardia [Recovered/Resolved]
  - Troponin I increased [Recovered/Resolved]
  - Transaminases increased [Recovered/Resolved]
